FAERS Safety Report 7602575-8 (Version None)
Quarter: 2011Q2

REPORT INFORMATION
  Report Type: 
  Country: None (occurrence: None)
  Receive Date: 20110630
  Receipt Date: 20110616
  Transmission Date: 20111010
  Serious: Yes (Hospitalization)
  Sender: FDA-Public Use
  Company Number: DSA_46944_2011

PATIENT
  Age: 81 Year
  Sex: Female

DRUGS (8)
  1. PANTOPRAZOLE SODIUM [Concomitant]
  2. ENALAPRIL MALEATE [Suspect]
     Indication: HYPERTENSION
     Dosage: (10 MG QD ORAL)
     Route: 048
     Dates: start: 20110201, end: 20110302
  3. SIMVASTATIN [Suspect]
     Indication: DYSLIPIDAEMIA
     Dosage: (10 MG QD ORAL)
     Route: 048
     Dates: start: 20110201, end: 20110302
  4. LEXOTAN [Concomitant]
  5. COMBISARTAN (NOT SPECIFIED) [Suspect]
     Indication: HYPERTENSION
     Dosage: (12.5 MG + 160 MG ONCE DAILY ORAL)
     Route: 048
     Dates: start: 20080101, end: 20110302
  6. LOPRESSOR [Concomitant]
  7. TICLOPIDINE HYDROCHLORIDE [Suspect]
     Indication: TRANSIENT ISCHAEMIC ATTACK
     Dosage: (250 MG QD ORAL)
     Route: 048
     Dates: start: 20110201
  8. MONOKET 20 MG (NOT SPECIFIED) [Suspect]
     Indication: HYPERTENSION
     Dosage: (20 MG QD ORAL)
     Route: 048
     Dates: start: 20080101

REACTIONS (4)
  - HAEMOGLOBIN DECREASED [None]
  - BLOOD CALCIUM DECREASED [None]
  - HYPOKALAEMIA [None]
  - DIARRHOEA [None]
